FAERS Safety Report 6153756-4 (Version None)
Quarter: 2009Q2

REPORT INFORMATION
  Report Type: 
  Country: None (occurrence: None)
  Receive Date: 20090410
  Receipt Date: 20090330
  Transmission Date: 20091009
  Serious: Yes (Death)
  Sender: FDA-Public Use
  Company Number: 2009AP001374

PATIENT
  Age: 59 Year
  Sex: Female

DRUGS (2)
  1. PAROXETINE HYDROCHLORIDE [Suspect]
  2. OLANZAPINE [Suspect]

REACTIONS (9)
  - ACCIDENTAL DEATH [None]
  - INTERNAL INJURY [None]
  - LACERATION [None]
  - MULTIPLE FRACTURES [None]
  - MULTIPLE INJURIES [None]
  - PELVIC FRACTURE [None]
  - RIB FRACTURE [None]
  - ROAD TRAFFIC ACCIDENT [None]
  - SKULL FRACTURE [None]
